FAERS Safety Report 5775900-0 (Version None)
Quarter: 2008Q2

REPORT INFORMATION
  Report Type: 
  Country: None (occurrence: None)
  Receive Date: 20080617
  Receipt Date: 20080605
  Transmission Date: 20081010
  Serious: Yes (Other)
  Sender: FDA-Public Use
  Company Number: US-PFIZER INC-2008047908

PATIENT
  Age: 20 Year
  Sex: Female
  Weight: 46.3 kg

DRUGS (1)
  1. ZOLOFT [Suspect]
     Indication: DEPRESSION

REACTIONS (4)
  - CONVULSION [None]
  - LOSS OF CONSCIOUSNESS [None]
  - ROAD TRAFFIC ACCIDENT [None]
  - SYNCOPE [None]
